FAERS Safety Report 6081445-3 (Version None)
Quarter: 2009Q1

REPORT INFORMATION
  Report Type: 
  Country: None (occurrence: None)
  Receive Date: 20090218
  Receipt Date: 20090203
  Transmission Date: 20090719
  Serious: Yes (Death, Other)
  Sender: FDA-Public Use
  Company Number: ES-JNJFOC-20070501317

PATIENT
  Sex: Male

DRUGS (6)
  1. REMICADE [Suspect]
     Indication: RHEUMATOID ARTHRITIS
     Route: 042
  2. ADALIMUMAB [Suspect]
     Indication: RHEUMATOID ARTHRITIS
  3. CORTICOID [Concomitant]
  4. LABETALOL [Concomitant]
  5. ASPIRIN [Concomitant]
  6. FUROSEMIDE [Concomitant]

REACTIONS (3)
  - ADENOCARCINOMA PANCREAS [None]
  - JAUNDICE CHOLESTATIC [None]
  - LOWER RESPIRATORY TRACT INFECTION [None]
